FAERS Safety Report 18952195 (Version 2)
Quarter: 2021Q2

REPORT INFORMATION
  Report Type: Report from Study
  Country: US (occurrence: US)
  Receive Date: 20210301
  Receipt Date: 20210424
  Transmission Date: 20210717
  Serious: Yes (Hospitalization, Other)
  Sender: FDA-Public Use
  Company Number: US-TAKEDA-2021TUS011731

PATIENT
  Sex: Male

DRUGS (4)
  1. TEDUGLUTIDE [Suspect]
     Active Substance: TEDUGLUTIDE
     Indication: SHORT-BOWEL SYNDROME
     Dosage: 1.7 MILLIGRAM, QD
     Route: 058
     Dates: start: 20200816
  2. TEDUGLUTIDE [Suspect]
     Active Substance: TEDUGLUTIDE
     Indication: SHORT-BOWEL SYNDROME
     Dosage: 1.7 MILLIGRAM, QD
     Route: 058
     Dates: start: 20200816
  3. TEDUGLUTIDE [Suspect]
     Active Substance: TEDUGLUTIDE
     Indication: SHORT-BOWEL SYNDROME
     Dosage: 1.7 MILLIGRAM, QD
     Route: 058
     Dates: start: 20200816
  4. TEDUGLUTIDE [Suspect]
     Active Substance: TEDUGLUTIDE
     Indication: SHORT-BOWEL SYNDROME
     Dosage: 1.7 MILLIGRAM, QD
     Route: 058
     Dates: start: 20200816

REACTIONS (7)
  - Vascular device infection [Unknown]
  - Stoma site erythema [Unknown]
  - Product dose omission issue [Unknown]
  - Atrial fibrillation [Unknown]
  - Fungaemia [Unknown]
  - Stoma site haemorrhage [Unknown]
  - Flatulence [Unknown]
